FAERS Safety Report 7534960-7 (Version None)
Quarter: 2011Q2

REPORT INFORMATION
  Report Type: 
  Country: None (occurrence: None)
  Receive Date: 20110609
  Receipt Date: 20090202
  Transmission Date: 20111010
  Serious: Yes (Death)
  Sender: FDA-Public Use
  Company Number: PHHY2009US03464

PATIENT
  Sex: Male

DRUGS (4)
  1. ROXANOL [Concomitant]
     Indication: PAIN
     Dosage: 0.5 ML, Q4H
     Dates: start: 20080917
  2. GLEEVEC [Suspect]
     Indication: GASTROINTESTINAL STROMAL TUMOUR
     Dosage: 400 MG, QD
     Route: 048
     Dates: start: 20080821, end: 20080926
  3. COMPAZINE [Concomitant]
     Dosage: 10 MG, Q4H
     Route: 048
     Dates: start: 20080905
  4. MORPHINE [Concomitant]
     Indication: PAIN
     Dosage: 30 MG, BID
     Route: 048
     Dates: start: 20080917

REACTIONS (1)
  - DEATH [None]
